FAERS Safety Report 14418363 (Version 1)
Quarter: 2018Q1

REPORT INFORMATION
  Report Type: Spontaneous
  Country: IT (occurrence: IT)
  Receive Date: 20180122
  Receipt Date: 20180122
  Transmission Date: 20180509
  Serious: Yes (Hospitalization)
  Sender: FDA-Public Use
  Company Number: IT-PFIZER INC-2018025812

PATIENT
  Age: 87 Year
  Sex: Male

DRUGS (7)
  1. GABAPENTIN. [Suspect]
     Active Substance: GABAPENTIN
     Indication: NEURALGIA
     Dosage: UNK
     Route: 048
     Dates: start: 20170101, end: 20170918
  2. LASIX [Concomitant]
     Active Substance: FUROSEMIDE
     Route: 048
  3. LEVOPRAID [Concomitant]
     Route: 048
  4. OMEPRAZOLE. [Concomitant]
     Active Substance: OMEPRAZOLE
     Route: 048
  5. ALLOPURINOL. [Concomitant]
     Active Substance: ALLOPURINOL
  6. COUMADIN [Concomitant]
     Active Substance: WARFARIN SODIUM
     Route: 048
  7. AVODART [Concomitant]
     Active Substance: DUTASTERIDE
     Route: 048

REACTIONS (2)
  - Abdominal pain [Unknown]
  - Constipation [Unknown]

NARRATIVE: CASE EVENT DATE: 20170918
